FAERS Safety Report 4486680-3 (Version None)
Quarter: 2004Q4

REPORT INFORMATION
  Report Type: 
  Country: None (occurrence: None)
  Receive Date: 20041021
  Receipt Date: 20040928
  Transmission Date: 20050328
  Serious: Yes (Hospitalization)
  Sender: FDA-Public Use
  Company Number: 8968

PATIENT
  Age: 73 Year
  Sex: Female

DRUGS (7)
  1. LEDERFOLINE [Suspect]
     Indication: RECTOSIGMOID CANCER
     Dosage: 325 MG DAILY IV
     Route: 042
     Dates: start: 20040517, end: 20040517
  2. LEDERFOLINE [Suspect]
     Indication: RECTOSIGMOID CANCER
     Dates: start: 20040811, end: 20040813
  3. ELOXATIN [Suspect]
     Indication: RECTOSIGMOID CANCER
     Dosage: 120 MG DAILY IV
     Route: 042
     Dates: start: 20040517, end: 20040517
  4. ELOXATIN [Suspect]
     Indication: RECTOSIGMOID CANCER
     Dates: start: 20040811, end: 20040813
  5. SOLU-MEDROL [Concomitant]
  6. ZOPHREN [Concomitant]
  7. FLUOROURACIL [Concomitant]

REACTIONS (7)
  - BACK PAIN [None]
  - CHILLS [None]
  - INFUSION RELATED REACTION [None]
  - INTRAVASCULAR HAEMOLYSIS [None]
  - MALAISE [None]
  - PYREXIA [None]
  - TREMOR [None]
